FAERS Safety Report 8575633-1 (Version None)
Quarter: 2012Q3

REPORT INFORMATION
  Report Type: 
  Country: None (occurrence: None)
  Receive Date: 20120807
  Receipt Date: 20120802
  Transmission Date: 20120928
  Serious: Yes (Other)
  Sender: FDA-Public Use
  Company Number: PHHY2012MX067440

PATIENT
  Sex: Male

DRUGS (4)
  1. EXELON [Suspect]
     Dosage: 1 DF, DAILY
     Route: 062
     Dates: start: 20090101
  2. EBIXA [Concomitant]
     Dosage: 1 DF, DAILY
     Dates: start: 20090101
  3. PAXIL [Concomitant]
     Dosage: 1 DF, DAILY
     Dates: start: 20100101
  4. TEGRETOL [Suspect]
     Indication: EPILEPSY
     Dosage: 200 MG, DAILY

REACTIONS (4)
  - SENILE DEMENTIA [None]
  - CARDIAC OPERATION [None]
  - CEREBROVASCULAR ACCIDENT [None]
  - HEMIPLEGIA [None]
